FAERS Safety Report 4287107-7 (Version None)
Quarter: 2004Q1

REPORT INFORMATION
  Report Type: 
  Country: None (occurrence: None)
  Receive Date: 20040204
  Receipt Date: 20040122
  Transmission Date: 20041129
  Serious: Yes (Hospitalization)
  Sender: FDA-Public Use
  Company Number: 204298

PATIENT
  Age: 52 Year
  Sex: Female

DRUGS (6)
  1. HERCEPTIN [Suspect]
     Indication: BREAST CANCER
     Dosage: SEE IMAGE
     Route: 042
     Dates: start: 20030908, end: 20030908
  2. HERCEPTIN [Suspect]
     Indication: BREAST CANCER
     Dosage: SEE IMAGE
     Route: 042
     Dates: start: 20030917
  3. DOCETAXEL (DOCETAXEL) [Suspect]
     Indication: BREAST CANCER
     Dosage: 136 MG, Q3W, INTRAVENOUS
     Route: 042
     Dates: start: 20030909
  4. CARBOPLATIN [Suspect]
     Indication: BREAST CANCER
     Dosage: 630 MG, Q3W, INTRAVENOUS
     Route: 042
     Dates: start: 20030909
  5. DEXAMETHASONE [Concomitant]
  6. ZOFRAN [Concomitant]

REACTIONS (3)
  - FEBRILE NEUTROPENIA [None]
  - HAEMOGLOBIN ABNORMAL [None]
  - WHITE BLOOD CELL COUNT DECREASED [None]
